FAERS Safety Report 9804584 (Version 1)
Quarter: 2014Q1

REPORT INFORMATION
  Report Type: Spontaneous
  Country: GB (occurrence: GB)
  Receive Date: 20140108
  Receipt Date: 20140108
  Transmission Date: 20141002
  Serious: Yes (Hospitalization, Other)
  Sender: FDA-Public Use
  Company Number: GB-B.I. PHARMACEUTICALS,INC./RIDGEFIELD-2014-BI-00712UK

PATIENT
  Age: 70 Year
  Sex: Male
  Weight: 110 kg

DRUGS (21)
  1. PRADAXA [Suspect]
     Dates: start: 20131010, end: 20131223
  2. AMIODARONE [Concomitant]
  3. AMLODIPINE [Concomitant]
  4. ATORVASTATIN [Concomitant]
  5. BISOPROLOL [Concomitant]
  6. BUDESONIDE AND FORMOTEROL FUMARATE [Concomitant]
  7. BUMETANIDE [Concomitant]
  8. CETIRIZINE [Concomitant]
  9. CITALOPRAM [Concomitant]
  10. CLOPIDOGREL [Concomitant]
  11. GLIMEPRIDE [Concomitant]
  12. GTN [Concomitant]
  13. ISOSORBIDE [Concomitant]
  14. LANSOPRAZOLE [Concomitant]
  15. LISINOPRIL [Concomitant]
  16. METFORMIN [Concomitant]
  17. MONTELUKAST [Concomitant]
  18. NICORANDIL [Concomitant]
  19. PARACETAMOL [Concomitant]
  20. SALBUTAMOL [Concomitant]
  21. TIOTROPIUM [Concomitant]

REACTIONS (2)
  - Hepatic cirrhosis [Not Recovered/Not Resolved]
  - Localised intraabdominal fluid collection [Unknown]
